FAERS Safety Report 4381878-7 (Version None)
Quarter: 2004Q2

REPORT INFORMATION
  Report Type: 
  Country: None (occurrence: None)
  Receive Date: 20040615
  Receipt Date: 20040602
  Transmission Date: 20050107
  Serious: Yes (Death, Hospitalization)
  Sender: FDA-Public Use
  Company Number: 04P-260-0259743-00

PATIENT
  Age: 58 Year
  Sex: Male
  Weight: 72.5 kg

DRUGS (5)
  1. HUMIRA [Suspect]
     Indication: RHEUMATOID ARTHRITIS
     Dosage: 40 MG, 1 IN 2 WK, SUBCUTANEOUS
     Route: 058
     Dates: start: 20031209
  2. METHOTREXATE SODIUM [Suspect]
     Indication: RHEUMATOID ARTHRITIS
     Dosage: 15 MG, 1 IN 1 WK, SUBCUTANEOUS
     Route: 058
     Dates: start: 19990501
  3. METHOTREXATE SODIUM [Suspect]
     Indication: RHEUMATOID ARTHRITIS
     Dosage: 15 MG, 1 IN 1 WK, SUBCUTANEOUS
     Route: 058
     Dates: start: 19990501
  4. SYSTEMIC STEROIDS [Concomitant]
  5. NON-SELECTIVE NSAR [Concomitant]

REACTIONS (5)
  - CARDIOGENIC SHOCK [None]
  - MALAISE [None]
  - PNEUMONIA [None]
  - REFUSAL OF TREATMENT BY PATIENT [None]
  - TOXIC SHOCK SYNDROME [None]
